FAERS Safety Report 15623461 (Version 4)
Quarter: 2019Q1

REPORT INFORMATION
  Report Type: Spontaneous
  Country: US (occurrence: US)
  Receive Date: 20181115
  Receipt Date: 20190319
  Transmission Date: 20190417
  Serious: Yes (Other)
  Sender: FDA-Public Use
  Company Number: US-PFIZER INC-2018470417

PATIENT
  Age: 34 Year
  Sex: Female
  Weight: 84 kg

DRUGS (1)
  1. LYRICA [Suspect]
     Active Substance: PREGABALIN
     Indication: FIBROMYALGIA
     Dosage: 50 MG, 3X/DAY
     Route: 048

REACTIONS (10)
  - Brain injury [Unknown]
  - Coma [Unknown]
  - Headache [Unknown]
  - Amnesia [Not Recovered/Not Resolved]
  - Nerve injury [Unknown]
  - Accident [Unknown]
  - Gait disturbance [Unknown]
  - Intentional product use issue [Unknown]
  - Cardiac arrest [Unknown]
  - Pain [Unknown]

NARRATIVE: CASE EVENT DATE: 201807
